FAERS Safety Report 4299745-6 (Version None)
Quarter: 2004Q1

REPORT INFORMATION
  Report Type: 
  Country: None (occurrence: None)
  Receive Date: 20040126
  Receipt Date: 20031117
  Transmission Date: 20041129
  Serious: No
  Sender: FDA-Public Use
  Company Number: USA031152734

PATIENT
  Age: 10 Year
  Sex: Male
  Weight: 30 kg

DRUGS (5)
  1. STRATTERA [Suspect]
     Indication: ATTENTION DEFICIT/HYPERACTIVITY DISORDER
     Dosage: 40 MG
     Dates: start: 20031001
  2. ALBUTEROL [Concomitant]
  3. PULMICORT [Concomitant]
  4. ADVAIR DISKUS 100/50 [Concomitant]
  5. CONCERTA [Concomitant]

REACTIONS (1)
  - ASTHMA [None]
